FAERS Safety Report 6905551-3 (Version None)
Quarter: 2010Q3

REPORT INFORMATION
  Report Type: 
  Country: None (occurrence: None)
  Receive Date: 20100804
  Receipt Date: 20100723
  Transmission Date: 20110219
  Serious: Yes (Hospitalization)
  Sender: FDA-Public Use
  Company Number: JP-PFIZER INC-2010092736

PATIENT
  Age: 41 Year
  Sex: Male
  Weight: 76 kg

DRUGS (9)
  1. SUNITINIB MALATE [Suspect]
     Indication: GASTROINTESTINAL STROMAL TUMOUR
     Dosage: 50 MG, 1X/DAY
     Route: 048
     Dates: start: 20080925, end: 20080929
  2. SUNITINIB MALATE [Suspect]
     Dosage: 37.5 MG, 1X/DAY
     Dates: start: 20081028
  3. FERROMIA [Concomitant]
     Dosage: 50 MG, 2X/DAY
     Route: 048
  4. MAGNESIUM OXIDE [Concomitant]
     Indication: PROPHYLAXIS
     Dosage: UNK
     Route: 048
  5. ALLELOCK [Concomitant]
     Indication: PRURITUS
     Dosage: 5 MG, 2X/DAY
     Route: 048
  6. MYSLEE [Concomitant]
     Indication: PROPHYLAXIS
     Dosage: 5 MG, UNK
     Route: 048
  7. LOXOPROFEN [Concomitant]
     Indication: GASTROINTESTINAL STROMAL TUMOUR
     Dosage: 60 MG, 3X/DAY
     Route: 048
  8. SELBEX [Concomitant]
     Indication: PROPHYLAXIS
     Dosage: 50 MG, 3X/DAY
     Route: 048
  9. LASIX [Concomitant]
     Indication: GASTROINTESTINAL STROMAL TUMOUR
     Dosage: 20 MG, 1X/DAY
     Route: 048

REACTIONS (1)
  - PERITONITIS [None]
